FAERS Safety Report 9976125 (Version 1)
Quarter: 2014Q1

REPORT INFORMATION
  Report Type: Report from Study
  Country: US (occurrence: US)
  Receive Date: 20140306
  Receipt Date: 20140306
  Transmission Date: 20141002
  Serious: No
  Sender: FDA-Public Use
  Company Number: US-ABBVIE-13P-163-1167222-00

PATIENT
  Age: 57 Year
  Sex: Male

DRUGS (7)
  1. HUMIRA [Suspect]
     Indication: RHEUMATOID ARTHRITIS
     Dates: start: 20130910
  2. GABAPENTIN [Concomitant]
     Indication: PRODUCT USED FOR UNKNOWN INDICATION
  3. MELOXICAM [Concomitant]
     Indication: RHEUMATOID ARTHRITIS
  4. COATED ASA [Concomitant]
     Indication: PROPHYLAXIS
     Dosage: 375MG DAILY
  5. MULTIVITAMIN [Concomitant]
     Indication: PROPHYLAXIS
     Dosage: DAILY
  6. VITAMIN E [Concomitant]
     Indication: PROPHYLAXIS
     Dosage: 400MG DAILY
  7. FISH OIL [Concomitant]
     Indication: PROPHYLAXIS
     Dosage: 1200MG DAILY

REACTIONS (4)
  - Joint swelling [Not Recovered/Not Resolved]
  - Drug ineffective [Not Recovered/Not Resolved]
  - Arthralgia [Not Recovered/Not Resolved]
  - Pain [Not Recovered/Not Resolved]
